FAERS Safety Report 17276869 (Version 2)
Quarter: 2020Q3

REPORT INFORMATION
  Report Type: Spontaneous
  Country: US (occurrence: US)
  Receive Date: 20200116
  Receipt Date: 20200701
  Transmission Date: 20201102
  Serious: No
  Sender: FDA-Public Use
  Company Number: US-PFIZER INC-2020019251

PATIENT
  Age: 66 Year
  Sex: Female

DRUGS (1)
  1. TOLTERODINE TARTRATE. [Suspect]
     Active Substance: TOLTERODINE TARTRATE
     Indication: INCONTINENCE
     Dosage: 4 MG, 2X/DAY
     Dates: end: 20190712

REACTIONS (3)
  - Drug ineffective [Unknown]
  - Overdose [Unknown]
  - Somnolence [Unknown]
